FAERS Safety Report 6391906-5 (Version None)
Quarter: 2009Q4

REPORT INFORMATION
  Report Type: 
  Country: None (occurrence: None)
  Receive Date: 20091007
  Receipt Date: 20090924
  Transmission Date: 20100525
  Serious: No
  Sender: FDA-Public Use
  Company Number: US-BAYER-200934193NA

PATIENT
  Age: 31 Year
  Sex: Female
  Weight: 86 kg

DRUGS (1)
  1. ULTRAVIST (PHARMACY BULK) [Suspect]
     Indication: COMPUTERISED TOMOGRAM THORAX
     Dosage: TOTAL DAILY DOSE: 96 ML
     Route: 042
     Dates: start: 20090924, end: 20090924

REACTIONS (2)
  - PRURITUS [None]
  - URTICARIA [None]
